FAERS Safety Report 9932789 (Version 2)
Quarter: 2014Q1

REPORT INFORMATION
  Report Type: Spontaneous
  Country: US (occurrence: US)
  Receive Date: 20140228
  Receipt Date: 20140228
  Transmission Date: 20141002
  Serious: No
  Sender: FDA-Public Use
  Company Number: US-ABBVIE-13P-163-1041407-00

PATIENT
  Sex: Male

DRUGS (1)
  1. ANDROGEL [Suspect]
     Indication: BLOOD TESTOSTERONE DECREASED

REACTIONS (8)
  - Accidental exposure to product [Not Recovered/Not Resolved]
  - Lip pain [Not Recovered/Not Resolved]
  - Lip exfoliation [Recovering/Resolving]
  - Lip swelling [Recovering/Resolving]
  - Oral discomfort [Recovering/Resolving]
  - Wound secretion [Recovering/Resolving]
  - Lip infection [Recovering/Resolving]
  - Oral discomfort [Unknown]
